FAERS Safety Report 7536478-4 (Version None)
Quarter: 2011Q2

REPORT INFORMATION
  Report Type: 
  Country: None (occurrence: None)
  Receive Date: 20110609
  Receipt Date: 20110602
  Transmission Date: 20111010
  Serious: Yes (Other)
  Sender: FDA-Public Use
  Company Number: CA-PFIZER INC-2009283788

PATIENT
  Age: 69 Year
  Sex: Female

DRUGS (2)
  1. YELLOW FEVER VACCINE [Concomitant]
     Dosage: UNK
     Dates: start: 20090603, end: 20090603
  2. LIPITOR [Suspect]
     Indication: BLOOD CHOLESTEROL
     Dosage: 10 MG, 1X/DAY
     Route: 048
     Dates: start: 20050901, end: 20091013

REACTIONS (12)
  - MUSCLE CONTRACTIONS INVOLUNTARY [None]
  - HYPOAESTHESIA [None]
  - RADICULOPATHY [None]
  - DIZZINESS [None]
  - OSTEOARTHRITIS [None]
  - MUSCLE DISORDER [None]
  - MYALGIA [None]
  - ARTHRALGIA [None]
  - NEUROPATHY PERIPHERAL [None]
  - ERYTHROMELALGIA [None]
  - PAIN [None]
  - PALPITATIONS [None]
